FAERS Safety Report 8370483-3 (Version None)
Quarter: 2012Q2

REPORT INFORMATION
  Report Type: 
  Country: None (occurrence: None)
  Receive Date: 20120518
  Receipt Date: 20120516
  Transmission Date: 20120825
  Serious: Yes (Hospitalization, Other)
  Sender: FDA-Public Use
  Company Number: PHHY2012CL042049

PATIENT
  Age: 72 Year
  Sex: Male

DRUGS (3)
  1. PRILOSEC [Concomitant]
  2. LOSARTAN POTASSIUM [Concomitant]
  3. ONBREZ [Suspect]
     Indication: CHRONIC OBSTRUCTIVE PULMONARY DISEASE
     Dosage: 1 DF, DAILY
     Route: 048

REACTIONS (2)
  - HEPATIC FAILURE [None]
  - INCORRECT ROUTE OF DRUG ADMINISTRATION [None]
